FAERS Safety Report 5505959-7 (Version None)
Quarter: 2007Q4

REPORT INFORMATION
  Report Type: 
  Country: None (occurrence: None)
  Receive Date: 20071105
  Receipt Date: 20071031
  Transmission Date: 20080405
  Serious: Yes (Other)
  Sender: FDA-Public Use
  Company Number: CA-WYE-G00547507

PATIENT
  Sex: Female
  Weight: 33.1 kg

DRUGS (4)
  1. NEUMEGA [Suspect]
     Indication: THROMBOCYTOPENIA
     Route: 058
     Dates: start: 20070901
  2. VINCRISTINE [Concomitant]
     Indication: NEPHROBLASTOMA
     Dosage: EVERY THREE WEEKS IN CYCLES
     Dates: start: 20061101
  3. IRINOTECAN HCL [Concomitant]
     Indication: NEPHROBLASTOMA
     Dosage: EVERY 3 WEEKS IN CYCLES
     Dates: start: 20061101
  4. MORPHINE [Interacting]
     Indication: PAIN
     Dosage: UNKNOWN
     Route: 042
     Dates: end: 20071024

REACTIONS (2)
  - DRUG INTERACTION POTENTIATION [None]
  - RESPIRATORY DEPRESSION [None]
